FAERS Safety Report 6416922 (Version 4)
Quarter: 2018Q4

REPORT INFORMATION
  Report Type: Spontaneous
  Country: US (occurrence: US)
  Receive Date: 20070918
  Receipt Date: 20181205
  Transmission Date: 20190205
  Serious: Yes (Other)
  Sender: FDA-Public Use
  Company Number: US-ASTRAZENECA-2006UW23637

PATIENT
  Age: 43 Year
  Sex: Male
  Weight: 110.2 kg

DRUGS (20)
  1. CLONIDINE. [Concomitant]
     Active Substance: CLONIDINE
     Indication: ANXIETY
     Dosage: 0.2-4 MG
     Route: 048
     Dates: start: 19970407
  2. ESKALITH [Concomitant]
     Active Substance: LITHIUM CARBONATE
     Indication: ANGER
     Dosage: 900-1350MG DAILY
     Dates: start: 19970407
  3. SEROQUEL [Suspect]
     Active Substance: QUETIAPINE FUMARATE
     Indication: DEPRESSION
     Dosage: STRENGTH 25MG, 100MG, 300MG. DOSE 100-300MG DAILY
     Route: 048
     Dates: start: 20010618
  4. SEROQUEL [Suspect]
     Active Substance: QUETIAPINE FUMARATE
     Indication: CRANIOCEREBRAL INJURY
     Dosage: 100.0MG UNKNOWN
     Route: 048
     Dates: end: 200603
  5. NEURONTIN [Concomitant]
     Active Substance: GABAPENTIN
     Indication: NEUROPATHY PERIPHERAL
     Dosage: STRENGTH 300MG, 400MG. DOSE 300MG THREE TIMES A DAY
     Dates: start: 20020617
  6. ESKALITH [Concomitant]
     Active Substance: LITHIUM CARBONATE
     Indication: AFFECTIVE DISORDER
     Dosage: 900-1350MG DAILY
     Dates: start: 19970407
  7. SEROQUEL [Suspect]
     Active Substance: QUETIAPINE FUMARATE
     Indication: DEPRESSION
     Dosage: 100.0MG UNKNOWN
     Route: 048
     Dates: end: 200603
  8. DEPAKOTE [Concomitant]
     Active Substance: DIVALPROEX SODIUM
     Indication: ANGER
     Dosage: STRENGTH-250MG, 500MG. DOSE-1000-2000MG DAILY
     Route: 048
     Dates: start: 19970404
  9. ZANAFLEX [Concomitant]
     Active Substance: TIZANIDINE HYDROCHLORIDE
     Dosage: STRENGTH 2 MG, 4 MG
     Dates: start: 20020321
  10. ESKALITH [Concomitant]
     Active Substance: LITHIUM CARBONATE
     Indication: BIPOLAR DISORDER
     Dosage: 900-1350MG DAILY
     Dates: start: 19970407
  11. KLONOPIN [Concomitant]
     Active Substance: CLONAZEPAM
     Indication: ANXIETY
     Dates: start: 19970407
  12. ZOLOFT [Concomitant]
     Active Substance: SERTRALINE HYDROCHLORIDE
     Dates: start: 20020617
  13. LAMICTAL [Concomitant]
     Active Substance: LAMOTRIGINE
     Dates: start: 20001107
  14. SEROQUEL [Suspect]
     Active Substance: QUETIAPINE FUMARATE
     Indication: BIPOLAR DISORDER
     Dosage: 100.0MG UNKNOWN
     Route: 048
     Dates: end: 200603
  15. DEPAKOTE [Concomitant]
     Active Substance: DIVALPROEX SODIUM
     Indication: BIPOLAR DISORDER
     Dosage: STRENGTH-250MG, 500MG. DOSE-1000-2000MG DAILY
     Route: 048
     Dates: start: 19970404
  16. AMBIEN [Concomitant]
     Active Substance: ZOLPIDEM TARTRATE
     Route: 048
     Dates: start: 20020730
  17. GABITRIL [Concomitant]
     Active Substance: TIAGABINE HYDROCHLORIDE
     Dates: start: 20021009
  18. SEROQUEL [Suspect]
     Active Substance: QUETIAPINE FUMARATE
     Indication: BIPOLAR DISORDER
     Dosage: STRENGTH 25MG, 100MG, 300MG. DOSE 100-300MG DAILY
     Route: 048
     Dates: start: 20010618
  19. SEROQUEL [Suspect]
     Active Substance: QUETIAPINE FUMARATE
     Indication: CRANIOCEREBRAL INJURY
     Dosage: STRENGTH 25MG, 100MG, 300MG. DOSE 100-300MG DAILY
     Route: 048
     Dates: start: 20010618
  20. DEPAKOTE [Concomitant]
     Active Substance: DIVALPROEX SODIUM
     Indication: AFFECTIVE DISORDER
     Dosage: STRENGTH-250MG, 500MG. DOSE-1000-2000MG DAILY
     Route: 048
     Dates: start: 19970404

REACTIONS (12)
  - Tubulointerstitial nephritis [Unknown]
  - Acute kidney injury [Unknown]
  - Diabetes mellitus inadequate control [Unknown]
  - Diabetic coma [Unknown]
  - Diabetic ketosis [Unknown]
  - Diabetic nephropathy [Unknown]
  - Type 2 diabetes mellitus [Unknown]
  - Renal failure [Unknown]
  - Type 1 diabetes mellitus [Unknown]
  - Diabetic neuropathy [Unknown]
  - Neuropathy peripheral [Unknown]
  - Diabetes mellitus [Unknown]

NARRATIVE: CASE EVENT DATE: 2003
